FAERS Safety Report 21972615 (Version 1)
Quarter: 2023Q1

REPORT INFORMATION
  Report Type: Spontaneous
  Country: US (occurrence: None)
  Receive Date: 20230207
  Receipt Date: 20230207
  Transmission Date: 20230417
  Serious: No
  Sender: FDA-Public Use
  Company Number: None

PATIENT
  Sex: Male

DRUGS (2)
  1. NINLARO [Suspect]
     Active Substance: IXAZOMIB CITRATE
     Indication: Plasma cell myeloma
     Dosage: OTHER FREQUENCY : D1,8,15 OF 28D C Y;?
     Route: 048
     Dates: start: 20221111
  2. REVLIMID [Suspect]
     Active Substance: LENALIDOMIDE
     Dosage: OTHER FREQUENCY : 21 D ON 7D OFF;?
     Route: 048

REACTIONS (2)
  - Disease progression [None]
  - Plasma cell myeloma [None]
